FAERS Safety Report 13287905 (Version 1)
Quarter: 2017Q1

REPORT INFORMATION
  Report Type: Spontaneous
  Country: DE (occurrence: DE)
  Receive Date: 20170302
  Receipt Date: 20170302
  Transmission Date: 20170428
  Serious: Yes (Other)
  Sender: FDA-Public Use
  Company Number: DE-TEVA-741607GER

PATIENT
  Age: 39 Year
  Sex: Female

DRUGS (4)
  1. MCP-RATIOPHARM [Suspect]
     Active Substance: METOCLOPRAMIDE HYDROCHLORIDE
     Indication: NAUSEA
     Dosage: ONCE LAST WEEK
     Dates: start: 201702
  2. MCP-RATIOPHARM [Suspect]
     Active Substance: METOCLOPRAMIDE HYDROCHLORIDE
     Dosage: IN HOSPITAL
     Dates: start: 20170203, end: 20170205
  3. L-THYROXIN 100 MICROGRAM [Concomitant]
     Indication: AUTOIMMUNE THYROIDITIS
  4. DIENOVEL [Concomitant]
     Indication: CONTRACEPTION

REACTIONS (6)
  - Paraesthesia [Not Recovered/Not Resolved]
  - Sleep disorder [Not Recovered/Not Resolved]
  - Insomnia [Not Recovered/Not Resolved]
  - Restlessness [Not Recovered/Not Resolved]
  - Muscle twitching [Not Recovered/Not Resolved]
  - Stupor [Not Recovered/Not Resolved]

NARRATIVE: CASE EVENT DATE: 20170203
